FAERS Safety Report 5783035-6 (Version None)
Quarter: 2008Q2

REPORT INFORMATION
  Report Type: 
  Country: None (occurrence: None)
  Receive Date: 20080624
  Receipt Date: 20080619
  Transmission Date: 20081010
  Serious: Yes (Hospitalization)
  Sender: FDA-Public Use
  Company Number: JP-SP-2008-01931

PATIENT
  Age: 66 Year
  Sex: Male

DRUGS (4)
  1. IMMUCYST [Suspect]
     Indication: CARCINOMA IN SITU OF BLADDER
     Route: 043
     Dates: start: 20080521
  2. IMMUCYST [Suspect]
     Route: 043
     Dates: start: 20080521
  3. IMMUCYST [Suspect]
     Route: 043
     Dates: start: 20080521
  4. IMMUCYST [Suspect]
     Route: 043
     Dates: start: 20080521

REACTIONS (6)
  - ANOREXIA [None]
  - HYPERTHERMIA [None]
  - LYMPH NODE TUBERCULOSIS [None]
  - MALAISE [None]
  - OFF LABEL USE [None]
  - URETERITIS [None]
